FAERS Safety Report 9608626 (Version 2)
Quarter: 2013Q4

REPORT INFORMATION
  Report Type: Report from Study
  Country: MX (occurrence: MX)
  Receive Date: 20131009
  Receipt Date: 20131111
  Transmission Date: 20140711
  Serious: Yes (Other)
  Sender: FDA-Public Use
  Company Number: MX-TAKEDA-2013TJP001546

PATIENT
  Sex: 0

DRUGS (1)
  1. PIOGLITAZONE, METFORMIN [Suspect]
     Indication: DIABETES MELLITUS
     Dosage: 15/580

REACTIONS (1)
  - Cerebrovascular accident [Unknown]
